FAERS Safety Report 23087958 (Version 3)
Quarter: 2025Q2

REPORT INFORMATION
  Report Type: Spontaneous
  Country: US (occurrence: US)
  Receive Date: 20231020
  Receipt Date: 20250501
  Transmission Date: 20250717
  Serious: Yes (Life-Threatening, Hospitalization, Other)
  Sender: AUROBINDO
  Company Number: US-MLMSERVICE-20231006-4585530-1

PATIENT
  Age: 63 Year
  Sex: Female

DRUGS (1)
  1. PREDNISONE [Suspect]
     Active Substance: PREDNISONE
     Indication: Asthma-chronic obstructive pulmonary disease overlap syndrome
     Route: 065

REACTIONS (5)
  - Strongyloidiasis [Unknown]
  - Acute respiratory failure [Recovering/Resolving]
  - Metabolic encephalopathy [Unknown]
  - Septic shock [Unknown]
  - Pseudomonas infection [Unknown]
